FAERS Safety Report 23897786 (Version 1)
Quarter: 2024Q2

REPORT INFORMATION
  Report Type: Spontaneous
  Country: AT (occurrence: AT)
  Receive Date: 20240524
  Receipt Date: 20240524
  Transmission Date: 20240716
  Serious: Yes (Other)
  Sender: FDA-Public Use
  Company Number: AT-DSJP-DSE-2024-119475

PATIENT
  Age: 8 Decade
  Sex: Female

DRUGS (1)
  1. ENHERTU [Suspect]
     Active Substance: FAM-TRASTUZUMAB DERUXTECAN-NXKI
     Indication: HER2 positive breast cancer
     Dosage: UNK UNK, CYCLIC (3RD DOSE)
     Route: 065

REACTIONS (3)
  - Cardiac failure [Unknown]
  - Malaise [Unknown]
  - Interstitial lung disease [Recovering/Resolving]
